FAERS Safety Report 8290695-7 (Version None)
Quarter: 2012Q2

REPORT INFORMATION
  Report Type: 
  Country: None (occurrence: None)
  Receive Date: 20120417
  Receipt Date: 20110629
  Transmission Date: 20120825
  Serious: Yes (Hospitalization)
  Sender: FDA-Public Use
  Company Number: US-ASTRAZENECA-2011SE39409

PATIENT
  Age: 58 Year
  Sex: Female

DRUGS (5)
  1. NEXIUM [Suspect]
     Indication: HIATUS HERNIA
     Dosage: UNKNOWN DOSE DAILY
     Route: 048
  2. NEXIUM [Suspect]
     Dosage: UNKNOWN DOSE TWO TIMES A DAY
     Route: 048
  3. NEXIUM [Suspect]
     Dosage: UNKNOWN DOSE TWO TIMES A DAY
     Route: 048
  4. NEXIUM [Suspect]
     Indication: GASTROOESOPHAGEAL REFLUX DISEASE
     Dosage: UNKNOWN DOSE DAILY
     Route: 048
  5. MYLANTA [Concomitant]

REACTIONS (4)
  - DRUG DOSE OMISSION [None]
  - MALAISE [None]
  - CHEST DISCOMFORT [None]
  - OFF LABEL USE [None]
